FAERS Safety Report 19464694 (Version 2)
Quarter: 2021Q2

REPORT INFORMATION
  Report Type: Report from Study
  Country: IT (occurrence: IT)
  Receive Date: 20210626
  Receipt Date: 20210626
  Transmission Date: 20210717
  Serious: Yes (Life-Threatening, Hospitalization, Other)
  Sender: FDA-Public Use
  Company Number: NVSC2021IT140753

PATIENT
  Age: 50 Year
  Sex: Male

DRUGS (4)
  1. LIORESAL [Concomitant]
     Active Substance: BACLOFEN
     Indication: MUSCLE SPASTICITY
     Dosage: 50 MG
     Route: 065
     Dates: start: 20160729, end: 20210219
  2. BAF312 [Suspect]
     Active Substance: SIPONIMOD
     Indication: MULTIPLE SCLEROSIS
     Dosage: 1 DF, QD
     Route: 065
     Dates: start: 20210129, end: 20210219
  3. ELIQUIS [Concomitant]
     Active Substance: APIXABAN
     Indication: PULMONARY EMBOLISM
     Dosage: 5 MG
     Route: 065
     Dates: start: 20191001, end: 20210219
  4. BIOTIN [Concomitant]
     Active Substance: BIOTIN
     Indication: HYPOVITAMINOSIS
     Dosage: 300 MG
     Route: 065
     Dates: start: 20181205, end: 20210219

REACTIONS (4)
  - Epilepsy [Recovering/Resolving]
  - Arteriosclerosis coronary artery [Unknown]
  - Acute myocardial infarction [Recovering/Resolving]
  - Atrial fibrillation [Unknown]

NARRATIVE: CASE EVENT DATE: 20210219
